FAERS Safety Report 24592598 (Version 1)
Quarter: 2024Q4

REPORT INFORMATION
  Report Type: Spontaneous
  Country: US (occurrence: US)
  Receive Date: 20241108
  Receipt Date: 20241108
  Transmission Date: 20250114
  Serious: No
  Sender: CHATTEM
  Company Number: US-OPELLA-2024OHG037186

PATIENT
  Age: 88 Year
  Sex: Female

DRUGS (35)
  1. FEXOFENADINE [Suspect]
     Active Substance: FEXOFENADINE HYDROCHLORIDE
     Indication: Lip swelling
     Route: 065
  2. FEXOFENADINE [Suspect]
     Active Substance: FEXOFENADINE HYDROCHLORIDE
     Indication: Dyspnoea
  3. FEXOFENADINE [Suspect]
     Active Substance: FEXOFENADINE HYDROCHLORIDE
     Indication: Wheezing
  4. FEXOFENADINE [Suspect]
     Active Substance: FEXOFENADINE HYDROCHLORIDE
     Indication: Angioedema
  5. FEXOFENADINE [Suspect]
     Active Substance: FEXOFENADINE HYDROCHLORIDE
     Indication: Oedema peripheral
  6. PREDNISONE [Concomitant]
     Active Substance: PREDNISONE
     Indication: Lip swelling
     Route: 065
  7. PREDNISONE [Concomitant]
     Active Substance: PREDNISONE
     Indication: Dyspnoea
  8. PREDNISONE [Concomitant]
     Active Substance: PREDNISONE
     Indication: Wheezing
  9. PREDNISONE [Concomitant]
     Active Substance: PREDNISONE
     Indication: Angioedema
  10. PREDNISONE [Concomitant]
     Active Substance: PREDNISONE
     Indication: Oedema peripheral
  11. ALBUTEROL [Concomitant]
     Active Substance: ALBUTEROL
     Indication: Lip swelling
     Route: 065
  12. ALBUTEROL [Concomitant]
     Active Substance: ALBUTEROL
     Indication: Dyspnoea
  13. ALBUTEROL [Concomitant]
     Active Substance: ALBUTEROL
     Indication: Wheezing
  14. ALBUTEROL [Concomitant]
     Active Substance: ALBUTEROL
     Indication: Angioedema
  15. ALBUTEROL [Concomitant]
     Active Substance: ALBUTEROL
     Indication: Oedema peripheral
  16. OXYGEN [Concomitant]
     Active Substance: OXYGEN
     Indication: Lip swelling
     Route: 065
  17. OXYGEN [Concomitant]
     Active Substance: OXYGEN
     Indication: Dyspnoea
  18. OXYGEN [Concomitant]
     Active Substance: OXYGEN
     Indication: Wheezing
  19. OXYGEN [Concomitant]
     Active Substance: OXYGEN
     Indication: Angioedema
  20. OXYGEN [Concomitant]
     Active Substance: OXYGEN
     Indication: Oedema peripheral
  21. BUDESONIDE [Concomitant]
     Active Substance: BUDESONIDE
     Indication: Lip swelling
     Dosage: INHALED
     Route: 065
  22. BUDESONIDE [Concomitant]
     Active Substance: BUDESONIDE
     Indication: Dyspnoea
  23. BUDESONIDE [Concomitant]
     Active Substance: BUDESONIDE
     Indication: Wheezing
  24. BUDESONIDE [Concomitant]
     Active Substance: BUDESONIDE
     Indication: Angioedema
  25. BUDESONIDE [Concomitant]
     Active Substance: BUDESONIDE
     Indication: Oedema peripheral
  26. FUROSEMIDE [Concomitant]
     Active Substance: FUROSEMIDE
     Indication: Lip swelling
     Route: 042
  27. FUROSEMIDE [Concomitant]
     Active Substance: FUROSEMIDE
     Indication: Dyspnoea
  28. FUROSEMIDE [Concomitant]
     Active Substance: FUROSEMIDE
     Indication: Wheezing
  29. FUROSEMIDE [Concomitant]
     Active Substance: FUROSEMIDE
     Indication: Angioedema
  30. FUROSEMIDE [Concomitant]
     Active Substance: FUROSEMIDE
     Indication: Oedema peripheral
  31. IPRATROPIUM [Concomitant]
     Active Substance: IPRATROPIUM
     Indication: Lip swelling
  32. IPRATROPIUM [Concomitant]
     Active Substance: IPRATROPIUM
     Indication: Dyspnoea
  33. IPRATROPIUM [Concomitant]
     Active Substance: IPRATROPIUM
     Indication: Wheezing
  34. IPRATROPIUM [Concomitant]
     Active Substance: IPRATROPIUM
     Indication: Angioedema
  35. IPRATROPIUM [Concomitant]
     Active Substance: IPRATROPIUM
     Indication: Oedema peripheral

REACTIONS (2)
  - Off label use [Unknown]
  - No adverse event [Unknown]
